FAERS Safety Report 5723340-2 (Version None)
Quarter: 2008Q2

REPORT INFORMATION
  Report Type: 
  Country: None (occurrence: None)
  Receive Date: 20080430
  Receipt Date: 20080421
  Transmission Date: 20081010
  Serious: Yes (Hospitalization)
  Sender: FDA-Public Use
  Company Number: US-JNJFOC-20080405564

PATIENT
  Sex: Female
  Weight: 59.6 kg

DRUGS (9)
  1. INFLIXIMAB [Suspect]
  2. INFLIXIMAB [Suspect]
     Indication: COLITIS ULCERATIVE
  3. PREDNISONE [Concomitant]
  4. PREDNISONE [Concomitant]
  5. PREDNISONE [Concomitant]
  6. IRON SULFATETHIAMIN COMPOUND TAB [Concomitant]
  7. PREVACID [Concomitant]
  8. ANTIBIOTIC [Concomitant]
  9. ANTIBIOTIC [Concomitant]

REACTIONS (1)
  - COLITIS ULCERATIVE [None]
